FAERS Safety Report 4525675-8 (Version None)
Quarter: 2004Q4

REPORT INFORMATION
  Report Type: 
  Country: None (occurrence: None)
  Receive Date: 20041116
  Receipt Date: 20041013
  Transmission Date: 20050328
  Serious: No
  Sender: FDA-Public Use
  Company Number: S04-USA-06750-01

PATIENT
  Sex: Female

DRUGS (2)
  1. NAMENDA [Suspect]
     Dosage: 20 MG QD PO
     Route: 048
     Dates: start: 20040101
  2. NAMENDA [Suspect]
     Dates: start: 20040701, end: 20040101

REACTIONS (1)
  - AGITATION [None]
